FAERS Safety Report 18550236 (Version 3)
Quarter: 2020Q4

REPORT INFORMATION
  Report Type: Spontaneous
  Country: JP (occurrence: JP)
  Receive Date: 20201126
  Receipt Date: 20201215
  Transmission Date: 20210114
  Serious: Yes (Hospitalization, Other)
  Sender: FDA-Public Use
  Company Number: JP-PFIZER INC-2020468169

PATIENT
  Age: 83 Year
  Sex: Female

DRUGS (8)
  1. LINZESS [Suspect]
     Active Substance: LINACLOTIDE
     Indication: CONSTIPATION
     Dosage: 0.25 MG, 1X/DAY (BEFORE BREAKFAST)
     Route: 048
     Dates: start: 20191126
  2. ASCORBIC ACID. [Concomitant]
     Active Substance: ASCORBIC ACID
     Dosage: 500 MG/DAY
     Route: 041
     Dates: start: 20200830, end: 20200907
  3. LINZESS [Suspect]
     Active Substance: LINACLOTIDE
     Dosage: 0.25 MG, ALTERNATE DAY (MON, WED AND FRI, BEFORE DAY SERVICE VISIT)
     Route: 048
     Dates: start: 20200225, end: 20200830
  4. MAGMITT [Concomitant]
     Active Substance: MAGNESIUM OXIDE
     Dosage: 750 MG/DAY
     Route: 048
     Dates: start: 20200904, end: 20200910
  5. MOSAPRIDE CITRATE [Concomitant]
     Active Substance: MOSAPRIDE CITRATE
     Dosage: 15 MG/DAY
     Route: 048
     Dates: start: 20200904, end: 20200910
  6. RIBOFLAVIN [Concomitant]
     Active Substance: RIBOFLAVIN
     Dosage: 10 MG/DAY
     Route: 041
     Dates: start: 20200830, end: 20200907
  7. CELECOX [Suspect]
     Active Substance: CELECOXIB
     Indication: ANALGESIC THERAPY
     Dosage: 200 MG, DAILY
     Route: 048
     Dates: start: 20200827, end: 20200907
  8. LANSOPRAZOLE OD [Concomitant]
     Active Substance: LANSOPRAZOLE
     Dosage: 15 MG/DAY
     Route: 048
     Dates: start: 20200904, end: 20200910

REACTIONS (2)
  - Disease recurrence [Recovered/Resolved]
  - Cholecystitis [Recovered/Resolved]

NARRATIVE: CASE EVENT DATE: 20200828
